FAERS Safety Report 6536739-1 (Version None)
Quarter: 2010Q1

REPORT INFORMATION
  Report Type: 
  Country: None (occurrence: None)
  Receive Date: 20100105
  Receipt Date: 20091225
  Transmission Date: 20100710
  Serious: Yes (Hospitalization)
  Sender: FDA-Public Use
  Company Number: WAES 0810USA05391

PATIENT
  Age: 47 Year
  Sex: Male

DRUGS (3)
  1. ZETIA [Suspect]
     Indication: TYPE IIA HYPERLIPIDAEMIA
     Dosage: 10 MG/DAILY PO
     Route: 048
     Dates: start: 20080418, end: 20080717
  2. CRESTOR [Suspect]
     Indication: HYPERLIPIDAEMIA
     Dosage: 2.5 MG/DAILY PO
     Route: 048
     Dates: start: 20080201, end: 20080831
  3. BENZBROMARONE [Concomitant]

REACTIONS (1)
  - HEPATIC FUNCTION ABNORMAL [None]
